FAERS Safety Report 16834571 (Version 8)
Quarter: 2025Q3

REPORT INFORMATION
  Report Type: Spontaneous
  Country: EU (occurrence: EU)
  Receive Date: 20190920
  Receipt Date: 20250912
  Transmission Date: 20251020
  Serious: Yes (Hospitalization, Other)
  Sender: MYLAN
  Company Number: EU-ACCORD-122436

PATIENT
  Sex: Male

DRUGS (77)
  1. OXALIPLATIN [Suspect]
     Active Substance: OXALIPLATIN
     Indication: Metastatic neoplasm
     Dates: start: 201703
  2. OXALIPLATIN [Suspect]
     Active Substance: OXALIPLATIN
     Indication: Rectal adenocarcinoma
     Route: 065
     Dates: start: 201703
  3. OXALIPLATIN [Suspect]
     Active Substance: OXALIPLATIN
     Indication: Metastatic neoplasm
     Route: 065
     Dates: start: 201703
  4. OXALIPLATIN [Suspect]
     Active Substance: OXALIPLATIN
     Indication: Rectal cancer
     Dates: start: 201703
  5. IRINOTECAN [Suspect]
     Active Substance: IRINOTECAN
     Indication: Colorectal cancer metastatic
     Dates: start: 201712
  6. IRINOTECAN [Suspect]
     Active Substance: IRINOTECAN
     Indication: Rectal adenocarcinoma
     Route: 065
     Dates: start: 201712
  7. IRINOTECAN [Suspect]
     Active Substance: IRINOTECAN
     Indication: Metastases to lung
     Route: 065
     Dates: start: 201712
  8. IRINOTECAN [Suspect]
     Active Substance: IRINOTECAN
     Indication: Rectal cancer
     Dates: start: 201712
  9. CAPECITABINE [Suspect]
     Active Substance: CAPECITABINE
     Indication: Rectal adenocarcinoma
     Dosage: 1500 MILLIGRAM, BID (3-0-3 PER DAY)
     Route: 048
     Dates: start: 201606
  10. CAPECITABINE [Suspect]
     Active Substance: CAPECITABINE
     Indication: Rectal adenocarcinoma
     Dosage: 1500 MILLIGRAM, BID (3-0-3 PER DAY)
     Dates: start: 201606
  11. CAPECITABINE [Suspect]
     Active Substance: CAPECITABINE
     Dosage: 1500 MILLIGRAM, BID (3-0-3 PER DAY)
     Dates: start: 201606
  12. CAPECITABINE [Suspect]
     Active Substance: CAPECITABINE
     Dosage: 1500 MILLIGRAM, BID (3-0-3 PER DAY)
     Route: 048
     Dates: start: 201606
  13. CAPECITABINE [Suspect]
     Active Substance: CAPECITABINE
  14. CAPECITABINE [Suspect]
     Active Substance: CAPECITABINE
  15. CAPECITABINE [Suspect]
     Active Substance: CAPECITABINE
     Route: 065
  16. CAPECITABINE [Suspect]
     Active Substance: CAPECITABINE
     Route: 065
  17. CAPECITABINE [Suspect]
     Active Substance: CAPECITABINE
     Dosage: 1500 MILLIGRAM, BID (3-0-31500 MG /2 X PER DAY STRENGTH: 500 MG)
     Route: 065
     Dates: start: 201703
  18. CAPECITABINE [Suspect]
     Active Substance: CAPECITABINE
     Dosage: 1500 MILLIGRAM, BID (3-0-31500 MG /2 X PER DAY STRENGTH: 500 MG)
     Route: 065
     Dates: start: 201703
  19. CAPECITABINE [Suspect]
     Active Substance: CAPECITABINE
     Dosage: 1500 MILLIGRAM, BID (3-0-31500 MG /2 X PER DAY STRENGTH: 500 MG)
     Dates: start: 201703
  20. CAPECITABINE [Suspect]
     Active Substance: CAPECITABINE
     Dosage: 1500 MILLIGRAM, BID (3-0-31500 MG /2 X PER DAY STRENGTH: 500 MG)
     Dates: start: 201703
  21. CAPECITABINE [Suspect]
     Active Substance: CAPECITABINE
  22. CAPECITABINE [Suspect]
     Active Substance: CAPECITABINE
  23. CAPECITABINE [Suspect]
     Active Substance: CAPECITABINE
     Route: 048
  24. CAPECITABINE [Suspect]
     Active Substance: CAPECITABINE
     Route: 048
  25. AVASTIN [Suspect]
     Active Substance: BEVACIZUMAB
     Indication: Metastatic neoplasm
  26. AVASTIN [Suspect]
     Active Substance: BEVACIZUMAB
     Indication: Rectal adenocarcinoma
     Route: 065
  27. AVASTIN [Suspect]
     Active Substance: BEVACIZUMAB
     Route: 065
  28. AVASTIN [Suspect]
     Active Substance: BEVACIZUMAB
  29. LEUCOVORIN [Suspect]
     Active Substance: LEUCOVORIN\LEUCOVORIN CALCIUM
     Indication: Metastases to lung
     Route: 065
     Dates: start: 201712
  30. LEUCOVORIN [Suspect]
     Active Substance: LEUCOVORIN\LEUCOVORIN CALCIUM
     Indication: Colorectal cancer metastatic
     Dates: start: 201712
  31. LEUCOVORIN [Suspect]
     Active Substance: LEUCOVORIN\LEUCOVORIN CALCIUM
     Indication: Rectal adenocarcinoma
     Dates: start: 201712
  32. LEUCOVORIN [Suspect]
     Active Substance: LEUCOVORIN\LEUCOVORIN CALCIUM
     Indication: Metastases to lung
     Route: 065
     Dates: start: 201712
  33. LEUCOVORIN [Suspect]
     Active Substance: LEUCOVORIN\LEUCOVORIN CALCIUM
     Indication: Rectal cancer
     Route: 065
  34. LEUCOVORIN [Suspect]
     Active Substance: LEUCOVORIN\LEUCOVORIN CALCIUM
  35. LEUCOVORIN [Suspect]
     Active Substance: LEUCOVORIN\LEUCOVORIN CALCIUM
  36. LEUCOVORIN [Suspect]
     Active Substance: LEUCOVORIN\LEUCOVORIN CALCIUM
     Route: 065
  37. XELODA [Suspect]
     Active Substance: CAPECITABINE
     Indication: Metastatic neoplasm
  38. XELODA [Suspect]
     Active Substance: CAPECITABINE
     Route: 065
  39. XELODA [Suspect]
     Active Substance: CAPECITABINE
     Route: 065
  40. XELODA [Suspect]
     Active Substance: CAPECITABINE
  41. FLUOROURACIL [Suspect]
     Active Substance: FLUOROURACIL
     Indication: Metastases to lung
     Dates: start: 201712
  42. FLUOROURACIL [Suspect]
     Active Substance: FLUOROURACIL
     Indication: Colorectal cancer metastatic
     Route: 065
     Dates: start: 201712
  43. FLUOROURACIL [Suspect]
     Active Substance: FLUOROURACIL
     Indication: Rectal adenocarcinoma
     Route: 065
     Dates: start: 201712
  44. FLUOROURACIL [Suspect]
     Active Substance: FLUOROURACIL
     Indication: Metastases to lung
     Dates: start: 201712
  45. FLUOROURACIL [Suspect]
     Active Substance: FLUOROURACIL
     Indication: Rectal cancer
  46. TRIFLURIDINE [Suspect]
     Active Substance: TRIFLURIDINE
     Indication: Metastases to lung
     Dosage: 60 MILLIGRAM, BID (STRENGTH: 20 MG3-0-3)
     Dates: start: 201804
  47. TRIFLURIDINE [Suspect]
     Active Substance: TRIFLURIDINE
     Indication: Rectal cancer
     Dosage: 60 MILLIGRAM, BID (STRENGTH: 20 MG3-0-3)
     Route: 065
     Dates: start: 201804
  48. TRIFLURIDINE [Suspect]
     Active Substance: TRIFLURIDINE
     Dosage: 60 MILLIGRAM, BID (STRENGTH: 20 MG3-0-3)
     Route: 065
     Dates: start: 201804
  49. TRIFLURIDINE [Suspect]
     Active Substance: TRIFLURIDINE
     Dosage: 60 MILLIGRAM, BID (STRENGTH: 20 MG3-0-3)
     Dates: start: 201804
  50. TIPIRACIL [Suspect]
     Active Substance: TIPIRACIL
     Indication: Rectal cancer
  51. TIPIRACIL [Suspect]
     Active Substance: TIPIRACIL
     Route: 065
  52. TIPIRACIL [Suspect]
     Active Substance: TIPIRACIL
     Route: 065
  53. TIPIRACIL [Suspect]
     Active Substance: TIPIRACIL
  54. LEUCOVORIN CALCIUM [Suspect]
     Active Substance: LEUCOVORIN CALCIUM
     Indication: Colorectal cancer metastatic
  55. LEUCOVORIN CALCIUM [Suspect]
     Active Substance: LEUCOVORIN CALCIUM
     Route: 065
  56. LEUCOVORIN CALCIUM [Suspect]
     Active Substance: LEUCOVORIN CALCIUM
     Route: 065
  57. LEUCOVORIN CALCIUM [Suspect]
     Active Substance: LEUCOVORIN CALCIUM
  58. ZALTRAP [Suspect]
     Active Substance: ZIV-AFLIBERCEPT
     Indication: Metastases to lung
     Route: 065
  59. ZALTRAP [Suspect]
     Active Substance: ZIV-AFLIBERCEPT
     Indication: Colorectal cancer metastatic
  60. ZALTRAP [Suspect]
     Active Substance: ZIV-AFLIBERCEPT
     Indication: Rectal adenocarcinoma
  61. ZALTRAP [Suspect]
     Active Substance: ZIV-AFLIBERCEPT
     Indication: Metastases to lung
     Route: 065
  62. ZALTRAP [Suspect]
     Active Substance: ZIV-AFLIBERCEPT
     Indication: Rectal cancer
     Route: 065
  63. ZALTRAP [Suspect]
     Active Substance: ZIV-AFLIBERCEPT
  64. ZALTRAP [Suspect]
     Active Substance: ZIV-AFLIBERCEPT
  65. ZALTRAP [Suspect]
     Active Substance: ZIV-AFLIBERCEPT
     Route: 065
  66. LONSURF [Suspect]
     Active Substance: TIPIRACIL HYDROCHLORIDE\TRIFLURIDINE
     Indication: Rectal cancer metastatic
     Dosage: 120 MILLIGRAM, QD
     Dates: start: 201804, end: 2018
  67. LONSURF [Suspect]
     Active Substance: TIPIRACIL HYDROCHLORIDE\TRIFLURIDINE
     Dosage: 120 MILLIGRAM, QD
     Route: 048
     Dates: start: 201804, end: 2018
  68. LONSURF [Suspect]
     Active Substance: TIPIRACIL HYDROCHLORIDE\TRIFLURIDINE
     Dosage: 120 MILLIGRAM, QD
     Route: 048
     Dates: start: 201804, end: 2018
  69. LONSURF [Suspect]
     Active Substance: TIPIRACIL HYDROCHLORIDE\TRIFLURIDINE
     Dosage: 120 MILLIGRAM, QD
     Dates: start: 201804, end: 2018
  70. PERINDOPRIL [Concomitant]
     Active Substance: PERINDOPRIL
     Indication: Hypertension
  71. PERINDOPRIL [Concomitant]
     Active Substance: PERINDOPRIL
     Route: 065
  72. PERINDOPRIL [Concomitant]
     Active Substance: PERINDOPRIL
     Route: 065
  73. PERINDOPRIL [Concomitant]
     Active Substance: PERINDOPRIL
  74. CAPECITABINE [Concomitant]
     Active Substance: CAPECITABINE
     Indication: Rectal cancer
     Dosage: 1500 MILLIGRAM, BID (3-0-31500 MG /2 X PER DAY STRENGTH: 500 MG)
  75. CAPECITABINE [Concomitant]
     Active Substance: CAPECITABINE
     Dosage: 1500 MILLIGRAM, BID (3-0-31500 MG /2 X PER DAY STRENGTH: 500 MG)
     Route: 048
  76. CAPECITABINE [Concomitant]
     Active Substance: CAPECITABINE
     Dosage: 1500 MILLIGRAM, BID (3-0-31500 MG /2 X PER DAY STRENGTH: 500 MG)
     Route: 048
  77. CAPECITABINE [Concomitant]
     Active Substance: CAPECITABINE
     Dosage: 1500 MILLIGRAM, BID (3-0-31500 MG /2 X PER DAY STRENGTH: 500 MG)

REACTIONS (16)
  - Peritonsillar abscess [Recovered/Resolved]
  - Leukopenia [Unknown]
  - Neuropathy peripheral [Not Recovered/Not Resolved]
  - Neutropenia [Unknown]
  - Gastrointestinal toxicity [Unknown]
  - Palmar-plantar erythrodysaesthesia syndrome [Unknown]
  - Skin toxicity [Unknown]
  - Disease progression [Unknown]
  - Condition aggravated [Unknown]
  - Dyspepsia [Unknown]
  - Weight decreased [Unknown]
  - Mucosal inflammation [Unknown]
  - Diarrhoea [Unknown]
  - Hypertension [Recovered/Resolved]
  - Therapy partial responder [Unknown]
  - Defaecation urgency [Unknown]

NARRATIVE: CASE EVENT DATE: 20170301
